FAERS Safety Report 23313063 (Version 1)
Quarter: 2023Q4

REPORT INFORMATION
  Report Type: Spontaneous
  Country: US (occurrence: US)
  Receive Date: 20231219
  Receipt Date: 20231219
  Transmission Date: 20240109
  Serious: No
  Sender: FDA-Public Use
  Company Number: US-PFIZER INC-202300441842

PATIENT
  Age: 76 Year
  Sex: Male

DRUGS (15)
  1. XELJANZ XR [Suspect]
     Active Substance: TOFACITINIB CITRATE
     Dosage: UNK
  2. XELJANZ XR [Suspect]
     Active Substance: TOFACITINIB CITRATE
     Dosage: UNK
  3. ALLEGRA ALLERGY [Concomitant]
     Active Substance: FEXOFENADINE HYDROCHLORIDE
  4. COENZYME Q10 [Concomitant]
     Active Substance: DIETARY SUPPLEMENT\UBIDECARENONE
  5. DAILY-VITE [Concomitant]
  6. DICLOFENAC SODIUM [Concomitant]
     Active Substance: DICLOFENAC\DICLOFENAC SODIUM
  7. FISH OIL [Concomitant]
     Active Substance: FISH OIL
  8. FOLIC ACID [Concomitant]
     Active Substance: FOLIC ACID
  9. LECITHIN [Concomitant]
     Active Substance: LECITHIN
  10. LEFLUNOMIDE [Concomitant]
     Active Substance: LEFLUNOMIDE
  11. LYCOPENE [Concomitant]
     Active Substance: LYCOPENE
  12. MAGNESIUM [Concomitant]
     Active Substance: MAGNESIUM
  13. PREDNISONE [Concomitant]
     Active Substance: PREDNISONE
  14. TUMS [Concomitant]
     Active Substance: CALCIUM CARBONATE
  15. VITAMIN B12 [Concomitant]
     Active Substance: CYANOCOBALAMIN

REACTIONS (1)
  - Therapeutic product effect decreased [Not Recovered/Not Resolved]
